FAERS Safety Report 8923356 (Version 1)
Quarter: 2012Q4

REPORT INFORMATION
  Report Type: Report from Study
  Country: US (occurrence: US)
  Receive Date: 20121123
  Receipt Date: 20121123
  Transmission Date: 20130627
  Serious: Yes (Other)
  Sender: FDA-Public Use
  Company Number: US-JNJFOC-20121107508

PATIENT
  Age: 51 None
  Sex: Female
  Weight: 60.78 kg

DRUGS (9)
  1. REMICADE [Suspect]
     Indication: RHEUMATOID ARTHRITIS
     Route: 042
     Dates: start: 20121003
  2. REMICADE [Suspect]
     Indication: RHEUMATOID ARTHRITIS
     Route: 042
     Dates: start: 20120905
  3. GABAPENTIN [Concomitant]
     Indication: FIBROMYALGIA
     Route: 048
     Dates: start: 201004
  4. DIAZEPAM [Concomitant]
     Indication: MUSCLE DISORDER
     Dosage: bedtime
     Route: 048
     Dates: start: 2010
  5. PLAQUENIL [Concomitant]
     Indication: RHEUMATOID ARTHRITIS
     Route: 048
     Dates: start: 201004
  6. METHOTREXATE [Concomitant]
     Dosage: formulation: 1cc
     Route: 050
     Dates: start: 201004
  7. CYMBALTA [Concomitant]
     Indication: FIBROMYALGIA
     Route: 048
     Dates: start: 2011
  8. ESTRADIOL [Concomitant]
     Indication: HORMONE REPLACEMENT THERAPY
     Route: 048
  9. ESTRADIOL [Concomitant]
     Indication: HYSTERECTOMY
     Route: 048

REACTIONS (7)
  - Vein disorder [Unknown]
  - Bone pain [Not Recovered/Not Resolved]
  - Rheumatoid arthritis [Not Recovered/Not Resolved]
  - Asthenia [Not Recovered/Not Resolved]
  - Decreased appetite [Not Recovered/Not Resolved]
  - Abnormal loss of weight [Not Recovered/Not Resolved]
  - Adverse event [Not Recovered/Not Resolved]
